FAERS Safety Report 24900487 (Version 1)
Quarter: 2025Q1

REPORT INFORMATION
  Report Type: Spontaneous
  Country: DE (occurrence: DE)
  Receive Date: 20250129
  Receipt Date: 20250129
  Transmission Date: 20250409
  Serious: Yes (Other)
  Sender: INCYTE
  Company Number: DE-002147023-NVSC2025DE009354

PATIENT

DRUGS (1)
  1. RUXOLITINIB [Suspect]
     Active Substance: RUXOLITINIB
     Indication: Chronic graft versus host disease
     Route: 048

REACTIONS (1)
  - Cytopenia [Unknown]
